FAERS Safety Report 6448158-7 (Version None)
Quarter: 2009Q4

REPORT INFORMATION
  Report Type: 
  Country: None (occurrence: None)
  Receive Date: 20091120
  Receipt Date: 20091111
  Transmission Date: 20100525
  Serious: Yes (Other)
  Sender: FDA-Public Use
  Company Number: JP-ASTRAZENECA-2009SE26177

PATIENT
  Age: 71 Year
  Sex: Female

DRUGS (2)
  1. MARCAINE [Suspect]
     Indication: LOCAL ANAESTHESIA
     Route: 065
     Dates: start: 20091106, end: 20091106
  2. GENERAL ANESTHETICS [Concomitant]
     Indication: GENERAL ANAESTHESIA

REACTIONS (1)
  - DRUG TOXICITY [None]
